APPROVED DRUG PRODUCT: STRONTIUM CHLORIDE SR-89
Active Ingredient: STRONTIUM CHLORIDE SR-89
Strength: 1mCi/ML
Dosage Form/Route: INJECTABLE;INJECTION
Application: A075941 | Product #001 | TE Code: AP
Applicant: Q BIOMED INC
Approved: Jan 6, 2003 | RLD: No | RS: No | Type: RX